FAERS Safety Report 19006773 (Version 1)
Quarter: 2021Q1

REPORT INFORMATION
  Report Type: Report from Study
  Country: None (occurrence: US)
  Receive Date: 20210315
  Receipt Date: 20210315
  Transmission Date: 20210420
  Serious: Yes (Other)
  Sender: FDA-Public Use
  Company Number: US-ABBVIE-21K-163-3808886-00

PATIENT
  Age: 48 Year
  Sex: Female

DRUGS (1)
  1. HUMIRA [Suspect]
     Active Substance: ADALIMUMAB
     Indication: CROHN^S DISEASE
     Dosage: CITRATE FREE
     Route: 058
     Dates: start: 20200204

REACTIONS (6)
  - Papilloma viral infection [Recovering/Resolving]
  - Constipation [Unknown]
  - Pituitary tumour [Unknown]
  - Headache [Unknown]
  - Genital rash [Recovering/Resolving]
  - Optic nerve injury [Unknown]

NARRATIVE: CASE EVENT DATE: 202011
